FAERS Safety Report 13130988 (Version 1)
Quarter: 2017Q1

REPORT INFORMATION
  Report Type: Spontaneous
  Country: US (occurrence: US)
  Receive Date: 20170118
  Receipt Date: 20170118
  Transmission Date: 20170428
  Serious: No
  Sender: FDA-Public Use
  Company Number: None

PATIENT
  Age: 29 Year
  Sex: Female
  Weight: 58.7 kg

DRUGS (1)
  1. NAFCILLIN NA/PREMADE BAG 2 GRAMS BAXTER [Suspect]
     Active Substance: NAFCILLIN\NAFCILLIN SODIUM
     Indication: BACTERAEMIA
     Route: 042
     Dates: start: 20161224, end: 20170118

REACTIONS (4)
  - Pruritus generalised [None]
  - Eosinophil count increased [None]
  - Catheter site pruritus [None]
  - Catheter site rash [None]

NARRATIVE: CASE EVENT DATE: 20170117
